FAERS Safety Report 9921543 (Version 1)
Quarter: 2014Q1

REPORT INFORMATION
  Report Type: Spontaneous
  Country: US (occurrence: US)
  Receive Date: 20140225
  Receipt Date: 20140225
  Transmission Date: 20141002
  Serious: No
  Sender: FDA-Public Use
  Company Number: US-PFIZER INC-2014048953

PATIENT
  Age: 76 Year
  Sex: Female

DRUGS (2)
  1. VFEND [Suspect]
     Indication: ARTHROPATHY
     Dosage: 200 MG, 2X/DAY
  2. VFEND [Suspect]
     Indication: BACTERIAL INFECTION

REACTIONS (1)
  - Hypersensitivity [Unknown]
